FAERS Safety Report 10579698 (Version 2)
Quarter: 2014Q4

REPORT INFORMATION
  Report Type: Spontaneous
  Country: US (occurrence: US)
  Receive Date: 20141112
  Receipt Date: 20141118
  Transmission Date: 20150529
  Serious: No
  Sender: FDA-Public Use
  Company Number: US-TEVA-521272USA

PATIENT
  Age: 19 Year
  Sex: Female

DRUGS (3)
  1. ORAL CONTRACEPTIVE NOS [Concomitant]
     Active Substance: UNSPECIFIED INGREDIENT
     Indication: SKIN DISORDER
  2. NUVIGIL [Suspect]
     Active Substance: ARMODAFINIL
     Indication: POOR QUALITY SLEEP
  3. NUVIGIL [Suspect]
     Active Substance: ARMODAFINIL
     Indication: NARCOLEPSY
     Dosage: 250 MILLIGRAM DAILY;
     Dates: start: 201408

REACTIONS (2)
  - Contusion [Not Recovered/Not Resolved]
  - Drug tolerance increased [Not Recovered/Not Resolved]
